FAERS Safety Report 24201527 (Version 3)
Quarter: 2024Q4

REPORT INFORMATION
  Report Type: Spontaneous
  Country: US (occurrence: US)
  Receive Date: 20240812
  Receipt Date: 20241111
  Transmission Date: 20250115
  Serious: Yes (Other)
  Sender: AMGEN
  Company Number: US-AMGEN-USASP2024156481

PATIENT
  Age: 48 Year
  Sex: Female

DRUGS (6)
  1. TEPEZZA [Suspect]
     Active Substance: TEPROTUMUMAB-TRBW
     Indication: Endocrine ophthalmopathy
     Dosage: UNK, Q3WK FIRST INFUSION
     Route: 042
     Dates: start: 20240201
  2. TEPEZZA [Suspect]
     Active Substance: TEPROTUMUMAB-TRBW
     Dosage: UNK, Q3WK, SECOND INFUSION
     Route: 042
     Dates: start: 2024
  3. TEPEZZA [Suspect]
     Active Substance: TEPROTUMUMAB-TRBW
     Dosage: UNK, Q3WK, FIFTH INFUSION
     Route: 042
     Dates: start: 2024
  4. TEPEZZA [Suspect]
     Active Substance: TEPROTUMUMAB-TRBW
     Dosage: UNK, Q3WK, SIXTH INFUSION
     Route: 042
     Dates: start: 2024
  5. TEPEZZA [Suspect]
     Active Substance: TEPROTUMUMAB-TRBW
     Dosage: UNK, Q3WK, LAST INFUSION
     Route: 042
     Dates: start: 20240601, end: 20240601
  6. OZEMPIC [Concomitant]
     Active Substance: SEMAGLUTIDE
     Indication: Diabetes mellitus
     Dosage: UNK

REACTIONS (17)
  - Thyroidectomy [Unknown]
  - Urticaria [Unknown]
  - Pharyngeal swelling [Recovering/Resolving]
  - Dry eye [Unknown]
  - Vision blurred [Unknown]
  - Contusion [Unknown]
  - Migraine [Recovered/Resolved]
  - Muscle spasms [Unknown]
  - Fatigue [Recovered/Resolved]
  - Tremor [Unknown]
  - Glycosylated haemoglobin increased [Recovering/Resolving]
  - Injection site rash [Unknown]
  - Ear discomfort [Recovered/Resolved]
  - Weight decreased [Unknown]
  - Muscle tightness [Unknown]
  - Mobility decreased [Unknown]
  - Rash macular [Recovered/Resolved]

NARRATIVE: CASE EVENT DATE: 20240101
